FAERS Safety Report 5016239-0 (Version None)
Quarter: 2006Q2

REPORT INFORMATION
  Report Type: 
  Country: None (occurrence: None)
  Receive Date: 20060414
  Receipt Date: 20060209
  Transmission Date: 20061013
  Serious: No
  Sender: FDA-Public Use
  Company Number: 2006SP000712

PATIENT
  Age: 42 Year
  Sex: Female
  Weight: 68.0396 kg

DRUGS (1)
  1. LUNESTA [Suspect]
     Indication: FIBROMYALGIA
     Dosage: 3 MG;HS;ORAL
     Route: 048
     Dates: start: 20051201

REACTIONS (1)
  - DRUG EFFECT DECREASED [None]
